FAERS Safety Report 9176261 (Version 1)
Quarter: 2013Q1

REPORT INFORMATION
  Report Type: Spontaneous
  Country: US (occurrence: US)
  Receive Date: 20130321
  Receipt Date: 20130321
  Transmission Date: 20140127
  Serious: No
  Sender: FDA-Public Use
  Company Number: US-BIOGENIDEC-2013BI016356

PATIENT
  Sex: Male

DRUGS (2)
  1. TYSABRI [Suspect]
     Indication: MULTIPLE SCLEROSIS
     Route: 042
     Dates: start: 20120126, end: 20130125
  2. BENADRYL [Concomitant]
     Indication: PREMEDICATION

REACTIONS (3)
  - Poor venous access [Recovered/Resolved]
  - Drug ineffective [Recovered/Resolved]
  - Gait disturbance [Not Recovered/Not Resolved]
